FAERS Safety Report 6925943-6 (Version None)
Quarter: 2010Q3

REPORT INFORMATION
  Report Type: 
  Country: None (occurrence: None)
  Receive Date: 20100813
  Receipt Date: 20100813
  Transmission Date: 20110219
  Serious: Yes (Hospitalization)
  Sender: FDA-Public Use
  Company Number: None

PATIENT
  Age: 83 Year
  Sex: Male

DRUGS (2)
  1. LOSARTAN POTASSIUM [Suspect]
     Dosage: 1 TAB BID PO
     Route: 048
     Dates: start: 20060921, end: 20091127
  2. CEPHALEXIN [Suspect]
     Dosage: 500 MG TID PO
     Route: 048
     Dates: start: 20091120, end: 20091127

REACTIONS (1)
  - ANGIOEDEMA [None]
